FAERS Safety Report 5716537-9 (Version None)
Quarter: 2008Q2

REPORT INFORMATION
  Report Type: 
  Country: None (occurrence: None)
  Receive Date: 20080424
  Receipt Date: 20080415
  Transmission Date: 20081010
  Serious: Yes (Hospitalization)
  Sender: FDA-Public Use
  Company Number: US-ELI_LILLY_AND_COMPANY-US200804003912

PATIENT
  Sex: Female

DRUGS (1)
  1. HUMULIN R [Suspect]
     Dosage: UNK, AS NEEDED
     Dates: start: 20080116

REACTIONS (8)
  - ANXIETY [None]
  - AUTOIMMUNE DISORDER [None]
  - BLOOD GLUCOSE DECREASED [None]
  - BLOOD GLUCOSE INCREASED [None]
  - DRUG INEFFECTIVE [None]
  - HOSPITALISATION [None]
  - LIVER DISORDER [None]
  - SPLEEN DISORDER [None]
